FAERS Safety Report 4542872-6 (Version None)
Quarter: 2004Q4

REPORT INFORMATION
  Report Type: 
  Country: None (occurrence: None)
  Receive Date: 20041229
  Receipt Date: 20041213
  Transmission Date: 20050328
  Serious: Yes (Hospitalization)
  Sender: FDA-Public Use
  Company Number: 203353

PATIENT
  Age: 52 Year
  Sex: Female

DRUGS (13)
  1. AVONEX [Suspect]
     Indication: MULTIPLE SCLEROSIS
     Dosage: IM
     Route: 030
     Dates: start: 20011001
  2. AVONEX [Suspect]
     Indication: MULTIPLE SCLEROSIS
     Dosage: IM
     Route: 030
     Dates: end: 20031116
  3. REBIF [Concomitant]
  4. EFFEXOR [Concomitant]
  5. CALCIUM GLUCONATE [Concomitant]
  6. METHYLPREDNISOLONE [Concomitant]
  7. PROAMATINE [Concomitant]
  8. OXYCONTIN [Concomitant]
  9. OXYCODONE HCL [Concomitant]
  10. DEPAKOTE [Concomitant]
  11. PRILOSEC [Concomitant]
  12. ESTRADIOL [Concomitant]
  13. DITROPAN [Concomitant]

REACTIONS (14)
  - ANAEMIA [None]
  - CEREBRAL INFARCTION [None]
  - CONDITION AGGRAVATED [None]
  - CONVULSION [None]
  - DRUG INEFFECTIVE [None]
  - GASTROINTESTINAL HAEMORRHAGE [None]
  - HYPONATRAEMIA [None]
  - MALAISE [None]
  - MULTIPLE SCLEROSIS [None]
  - PETIT MAL EPILEPSY [None]
  - PLATELET COUNT DECREASED [None]
  - SINUS TACHYCARDIA [None]
  - THROMBOCYTOPENIA [None]
  - UNEVALUABLE EVENT [None]
